FAERS Safety Report 6047856-7 (Version None)
Quarter: 2009Q1

REPORT INFORMATION
  Report Type: 
  Country: None (occurrence: None)
  Receive Date: 20090123
  Receipt Date: 20090113
  Transmission Date: 20090719
  Serious: Yes (Disabling, Other)
  Sender: FDA-Public Use
  Company Number: BR-BAYER-200911259LA

PATIENT
  Age: 36 Year
  Sex: Female
  Weight: 60 kg

DRUGS (2)
  1. TRIQUILAR [Suspect]
     Indication: MENSTRUAL DISORDER
     Route: 048
     Dates: end: 20080101
  2. YASMIN [Suspect]
     Indication: ORAL CONTRACEPTION
     Route: 048
     Dates: start: 20090102

REACTIONS (10)
  - ABDOMINAL DISTENSION [None]
  - AGEUSIA [None]
  - BREAST PAIN [None]
  - MOBILITY DECREASED [None]
  - PAIN IN EXTREMITY [None]
  - PELVIC PAIN [None]
  - RETCHING [None]
  - SALIVARY HYPERSECRETION [None]
  - SOMNOLENCE [None]
  - VASODILATATION [None]
